FAERS Safety Report 6889077-1 (Version None)
Quarter: 2010Q3

REPORT INFORMATION
  Report Type: 
  Country: None (occurrence: None)
  Receive Date: 20100730
  Receipt Date: 20071210
  Transmission Date: 20110219
  Serious: Yes (Other)
  Sender: FDA-Public Use
  Company Number: US-PFIZER INC-2007103613

PATIENT
  Sex: Female
  Weight: 63.1 kg

DRUGS (7)
  1. LIPITOR [Suspect]
     Indication: BLOOD CHOLESTEROL INCREASED
     Dates: start: 20050101
  2. SYNTHROID [Concomitant]
     Indication: HYPOTHYROIDISM
  3. DETROL LA [Concomitant]
     Indication: HYPERTONIC BLADDER
  4. REGLAN [Concomitant]
     Indication: DYSPHAGIA
  5. PRILOSEC [Concomitant]
     Indication: DYSPEPSIA
  6. EVISTA [Concomitant]
     Indication: PAIN
  7. NORCO [Concomitant]
     Indication: PAIN

REACTIONS (1)
  - AMNESIA [None]
